FAERS Safety Report 7901860-X (Version None)
Quarter: 2011Q4

REPORT INFORMATION
  Report Type: 
  Country: None (occurrence: None)
  Receive Date: 20111108
  Receipt Date: 20111104
  Transmission Date: 20120403
  Serious: Yes (Other)
  Sender: FDA-Public Use
  Company Number: IT-MERCK-1111ITA00009

PATIENT
  Age: 43 Month
  Sex: Male

DRUGS (1)
  1. SINGULAIR [Suspect]
     Indication: BRONCHOSPASM
     Route: 048
     Dates: start: 20110926, end: 20111015

REACTIONS (1)
  - HYPERTRANSAMINASAEMIA [None]
